FAERS Safety Report 21025246 (Version 2)
Quarter: 2022Q3

REPORT INFORMATION
  Report Type: Spontaneous
  Country: IT (occurrence: IT)
  Receive Date: 20220630
  Receipt Date: 20220716
  Transmission Date: 20221027
  Serious: Yes (Hospitalization, Other)
  Sender: FDA-Public Use
  Company Number: IT-MLMSERVICE-20220613-3610429-1

PATIENT
  Age: 70 Year
  Sex: Male

DRUGS (5)
  1. LEVOFLOXACIN [Suspect]
     Active Substance: LEVOFLOXACIN
     Indication: Antibiotic therapy
     Dosage: 750 MILLIGRAM, ONCE A DAY
     Route: 065
     Dates: start: 2020, end: 2020
  2. PIPERACILLIN AND TAZOBACTAM [Suspect]
     Active Substance: PIPERACILLIN SODIUM\TAZOBACTAM SODIUM
     Indication: Antibiotic therapy
     Dosage: 1 DOSAGE FORM, 3 TIMES A DAY
     Route: 065
     Dates: start: 2020
  3. ACETAMINOPHEN AND CODEINE [Concomitant]
     Active Substance: ACETAMINOPHEN\CODEINE PHOSPHATE
     Indication: Back pain
     Dosage: 1 DOSAGE FORM
     Route: 065
     Dates: start: 2020
  4. EPIRUBICIN [Concomitant]
     Active Substance: EPIRUBICIN
     Indication: Neoadjuvant therapy
     Dosage: 60 MILLIGRAM/SQ. METER, DAYS 1?2
     Route: 065
  5. IFOSFAMIDE [Concomitant]
     Active Substance: IFOSFAMIDE
     Indication: Neoadjuvant therapy
     Dosage: 3000 MILLIGRAM/SQ. METER DAYS 1?2?3 (EVERY 21 DAYS).
     Route: 065

REACTIONS (2)
  - Pleural effusion [Recovered/Resolved]
  - Pneumothorax [Recovered/Resolved]

NARRATIVE: CASE EVENT DATE: 20200101
